FAERS Safety Report 13664965 (Version 2)
Quarter: 2017Q2

REPORT INFORMATION
  Report Type: Report from Study
  Country: None (occurrence: CA)
  Receive Date: 20170619
  Receipt Date: 20170619
  Transmission Date: 20170830
  Serious: Yes (Other)
  Sender: FDA-Public Use
  Company Number: CA-ABBVIE-14P-028-1192512-00

PATIENT
  Sex: Male
  Weight: 108.05 kg

DRUGS (8)
  1. ZYCLARA [Concomitant]
     Active Substance: IMIQUIMOD
     Indication: PRODUCT USED FOR UNKNOWN INDICATION
  2. ADVIL [Concomitant]
     Active Substance: IBUPROFEN
     Indication: PAIN
     Dosage: DOSE TEXT: VARIES
     Dates: start: 2000
  3. HUMIRA [Suspect]
     Active Substance: ADALIMUMAB
     Indication: ANKYLOSING SPONDYLITIS
     Route: 058
     Dates: start: 20090222
  4. FLU VACCINE [Concomitant]
     Active Substance: INFLUENZA VIRUS VACCINE
     Indication: ANTIVIRAL PROPHYLAXIS
     Dates: start: 201312, end: 201312
  5. METHOTREXATE. [Concomitant]
     Active Substance: METHOTREXATE
     Indication: ANKYLOSING SPONDYLITIS
     Dates: start: 2000
  6. HUMIRA [Suspect]
     Active Substance: ADALIMUMAB
     Route: 058
  7. AZIDOTHYMIDINE (AZT) [Concomitant]
     Indication: ANKYLOSING SPONDYLITIS
     Dates: start: 2000
  8. HUMIRA [Suspect]
     Active Substance: ADALIMUMAB
     Route: 058

REACTIONS (16)
  - Malaise [Unknown]
  - Bone loss [Not Recovered/Not Resolved]
  - Drug effect incomplete [Not Recovered/Not Resolved]
  - Incision site vesicles [Not Recovered/Not Resolved]
  - Skin cancer [Not Recovered/Not Resolved]
  - Basal cell carcinoma [Recovered/Resolved]
  - Influenza [Unknown]
  - Incision site infection [Not Recovered/Not Resolved]
  - Basal cell carcinoma [Not Recovered/Not Resolved]
  - Tendon calcification [Not Recovered/Not Resolved]
  - Upper limb fracture [Recovering/Resolving]
  - Basal cell carcinoma [Recovered/Resolved]
  - Cough [Unknown]
  - Fall [Unknown]
  - Joint dislocation [Unknown]
  - Exostosis [Not Recovered/Not Resolved]

NARRATIVE: CASE EVENT DATE: 2010
